FAERS Safety Report 9385902 (Version 2)
Quarter: 2013Q4

REPORT INFORMATION
  Report Type: Other
  Country: JP (occurrence: JP)
  Receive Date: 20130705
  Receipt Date: 20131104
  Transmission Date: 20140711
  Serious: Yes (Life-Threatening)
  Sender: FDA-Public Use
  Company Number: JP-BRISTOL-MYERS SQUIBB COMPANY-19072123

PATIENT
  Age: 66 Year
  Sex: Female

DRUGS (4)
  1. ERBITUX SOLN FOR INF 5MG/ML [Suspect]
     Indication: RECTOSIGMOID CANCER RECURRENT
     Dosage: INTRAVENOUS INFUSION
     Route: 041
  2. FLUOROURACIL [Concomitant]
     Indication: RECTOSIGMOID CANCER RECURRENT
     Dosage: INTRAVENOUS INFUSION
     Route: 041
  3. CALCIUM FOLINATE [Concomitant]
     Indication: RECTOSIGMOID CANCER RECURRENT
     Dosage: INTRAVENOUS INFUSION
     Route: 041
  4. IRINOTECAN [Concomitant]
     Indication: RECTOSIGMOID CANCER RECURRENT
     Dosage: INTRAVENOUS INFUSION
     Route: 041

REACTIONS (1)
  - Pulmonary artery thrombosis [Unknown]
